FAERS Safety Report 7549638-3 (Version None)
Quarter: 2011Q2

REPORT INFORMATION
  Report Type: 
  Country: None (occurrence: None)
  Receive Date: 20110615
  Receipt Date: 20110603
  Transmission Date: 20111010
  Serious: No
  Sender: FDA-Public Use
  Company Number: US-JNJFOC-20110602230

PATIENT
  Age: 51 Year
  Sex: Female
  Weight: 81.8 kg

DRUGS (8)
  1. ZYPREXA [Suspect]
     Route: 065
     Dates: start: 20110101, end: 20110101
  2. OTHER HORMONES [Concomitant]
     Route: 065
  3. ZYPREXA [Suspect]
     Route: 065
     Dates: end: 20110101
  4. INVEGA [Suspect]
     Indication: PRODUCT USED FOR UNKNOWN INDICATION
     Route: 065
  5. ZYPREXA [Suspect]
     Indication: PRODUCT USED FOR UNKNOWN INDICATION
     Route: 065
     Dates: start: 20110502
  6. LITHIUM [Concomitant]
     Route: 065
  7. ZYPREXA [Suspect]
     Route: 065
     Dates: start: 20110101
  8. ZYPREXA [Suspect]
     Route: 065
     Dates: start: 20110101, end: 20110101

REACTIONS (4)
  - FEELING OF BODY TEMPERATURE CHANGE [None]
  - ANXIETY [None]
  - ADVERSE DRUG REACTION [None]
  - DRUG EFFECT DECREASED [None]
